FAERS Safety Report 5989433-X (Version None)
Quarter: 2008Q4

REPORT INFORMATION
  Report Type: 
  Country: None (occurrence: None)
  Receive Date: 20081205
  Receipt Date: 20081121
  Transmission Date: 20090506
  Serious: Yes (Death)
  Sender: FDA-Public Use
  Company Number: KV200800454

PATIENT
  Age: 68 Year
  Sex: Male
  Weight: 81.6 kg

DRUGS (1)
  1. MORPHINE SULFATE [Suspect]
     Indication: BLADDER PAIN
     Dosage: ORAL
     Route: 048
     Dates: start: 20071220, end: 20080101

REACTIONS (4)
  - BLADDER CANCER [None]
  - MALIGNANT NEOPLASM PROGRESSION [None]
  - PRODUCT QUALITY ISSUE [None]
  - UNRESPONSIVE TO STIMULI [None]
